FAERS Safety Report 4262239-8 (Version None)
Quarter: 2004Q1

REPORT INFORMATION
  Report Type: 
  Country: None (occurrence: None)
  Receive Date: 20040102
  Receipt Date: 20031209
  Transmission Date: 20041129
  Serious: Yes (Hospitalization, Other)
  Sender: FDA-Public Use
  Company Number: PHEH2003US11249

PATIENT
  Age: 45 Year
  Sex: Male

DRUGS (7)
  1. CLOZARIL [Suspect]
     Indication: PSYCHOTIC DISORDER
     Dosage: 400 MG, TID
     Route: 048
  2. CIPRO [Suspect]
  3. LIPITOR [Concomitant]
  4. SINGULAIR ^DIECKMANN^ [Concomitant]
  5. SYNTHROID [Concomitant]
  6. SIMETHICONE [Concomitant]
  7. COGENTIN                                /UNK/ [Concomitant]

REACTIONS (15)
  - AGITATION [None]
  - BLOOD GLUCOSE INCREASED [None]
  - CONFUSIONAL STATE [None]
  - DELUSIONAL DISORDER, UNSPECIFIED TYPE [None]
  - GAIT DISTURBANCE [None]
  - GASTROENTERITIS [None]
  - GRAND MAL CONVULSION [None]
  - HEPATIC CYST [None]
  - OEDEMA PERIPHERAL [None]
  - PAIN IN EXTREMITY [None]
  - PETIT MAL EPILEPSY [None]
  - POSTICTAL STATE [None]
  - PYREXIA [None]
  - RASH [None]
  - WHITE BLOOD CELL COUNT INCREASED [None]
